FAERS Safety Report 7906588-8 (Version None)
Quarter: 2011Q4

REPORT INFORMATION
  Report Type: 
  Country: None (occurrence: None)
  Receive Date: 20111109
  Receipt Date: 20111109
  Transmission Date: 20120403
  Serious: Yes (Hospitalization)
  Sender: FDA-Public Use
  Company Number: None

PATIENT
  Sex: Male
  Weight: 86.637 kg

DRUGS (4)
  1. VINBLASTINE SULFATE [Suspect]
     Indication: INVESTIGATION
     Dosage: V-6MG IV
     Route: 042
     Dates: start: 20111006
  2. METHOTREXATE [Suspect]
     Indication: INVESTIGATION
     Dosage: M-62MG IV;
     Route: 042
     Dates: start: 20111006
  3. DOXORUBICIN HCL [Suspect]
     Dosage: D-30MG IV
     Route: 042
  4. CISPLATIN [Suspect]
     Dosage: C-72MG IV
     Route: 042

REACTIONS (3)
  - PLATELET COUNT DECREASED [None]
  - DIARRHOEA [None]
  - NEUTROPHIL COUNT DECREASED [None]
